FAERS Safety Report 18928623 (Version 2)
Quarter: 2021Q1

REPORT INFORMATION
  Report Type: Spontaneous
  Country: US (occurrence: US)
  Receive Date: 20210223
  Receipt Date: 20210305
  Transmission Date: 20210420
  Serious: Yes (Hospitalization, Other)
  Sender: FDA-Public Use
  Company Number: US-BIOVITRUM-2021US1723

PATIENT
  Sex: Male

DRUGS (8)
  1. POLY?VI?SOL WITH IRON [Concomitant]
     Active Substance: IRON\VITAMINS
  2. SIMETHICONE (DIMETHICONE) [Concomitant]
     Active Substance: DIMETHICONE
  3. PEPCID AC [Concomitant]
     Active Substance: FAMOTIDINE
  4. GLYCERIN ADULT SUPP.RECT [Concomitant]
  5. SYNAGIS [Suspect]
     Active Substance: PALIVIZUMAB
     Indication: PREMATURE BABY
     Route: 030
     Dates: start: 20210128
  6. GERBER SOOTHE VIT D?PROBIOTIC [Concomitant]
  7. CAFFEINE. [Concomitant]
     Active Substance: CAFFEINE
  8. LACTULOSE. [Concomitant]
     Active Substance: LACTULOSE
     Dosage: 10 G/15 ML SOLUTION

REACTIONS (6)
  - Umbilical hernia [Not Recovered/Not Resolved]
  - Inguinal hernia [Not Recovered/Not Resolved]
  - Weight decreased [Not Recovered/Not Resolved]
  - Anaemia [Not Recovered/Not Resolved]
  - Gastrooesophageal reflux disease [Not Recovered/Not Resolved]
  - Bradycardia [Not Recovered/Not Resolved]
